FAERS Safety Report 5123934-1 (Version None)
Quarter: 2006Q4

REPORT INFORMATION
  Report Type: 
  Country: None (occurrence: None)
  Receive Date: 20061010
  Receipt Date: 20060519
  Transmission Date: 20070319
  Serious: Yes (Life-Threatening)
  Sender: FDA-Public Use
  Company Number: PHBS2006JP07579

PATIENT
  Age: 50 Year

DRUGS (2)
  1. GLEEVEC [Suspect]
     Indication: CHRONIC MYELOID LEUKAEMIA
     Dosage: 400 MG/D
     Route: 048
     Dates: start: 20031201, end: 20060101
  2. GLEEVEC [Suspect]
     Dosage: 600 MG/D
     Route: 048
     Dates: start: 20060101

REACTIONS (6)
  - ABDOMINAL MASS [None]
  - ABDOMINAL PAIN [None]
  - ASCITES [None]
  - BURKITT'S LYMPHOMA [None]
  - CHRONIC MYELOID LEUKAEMIA [None]
  - DIARRHOEA [None]
